FAERS Safety Report 22222008 (Version 4)
Quarter: 2024Q1

REPORT INFORMATION
  Report Type: Report from Study
  Country: CA (occurrence: CA)
  Receive Date: 20230418
  Receipt Date: 20240111
  Transmission Date: 20240409
  Serious: Yes (Hospitalization, Other)
  Sender: FDA-Public Use
  Company Number: CA-JNJFOC-20230122114

PATIENT
  Age: 74 Year
  Sex: Female

DRUGS (4)
  1. SIMPONI [Suspect]
     Active Substance: GOLIMUMAB
     Indication: Rheumatoid arthritis
     Route: 058
     Dates: start: 20220616
  2. SIMPONI [Suspect]
     Active Substance: GOLIMUMAB
     Route: 058
  3. ATENOLOL [Concomitant]
     Active Substance: ATENOLOL
  4. PERINDOPRIL [Concomitant]
     Active Substance: PERINDOPRIL

REACTIONS (4)
  - Pneumonia [Recovering/Resolving]
  - Atrial fibrillation [Unknown]
  - Haemorrhage [Unknown]
  - Neoplasm malignant [Unknown]
